FAERS Safety Report 17489337 (Version 1)
Quarter: 2020Q1

REPORT INFORMATION
  Report Type: Spontaneous
  Country: FR (occurrence: FR)
  Receive Date: 20200303
  Receipt Date: 20200303
  Transmission Date: 20200409
  Serious: Yes (Hospitalization)
  Sender: FDA-Public Use
  Company Number: FR-PFIZER INC-2020089996

PATIENT
  Age: 23 Year
  Sex: Male

DRUGS (1)
  1. LYRICA [Suspect]
     Active Substance: PREGABALIN
     Dosage: UNK
     Route: 048
     Dates: start: 2019, end: 20190912

REACTIONS (5)
  - Headache [Recovering/Resolving]
  - Drug withdrawal syndrome [Recovering/Resolving]
  - General physical health deterioration [Recovering/Resolving]
  - Myalgia [Recovering/Resolving]
  - Intentional product misuse [Recovering/Resolving]

NARRATIVE: CASE EVENT DATE: 201907
